FAERS Safety Report 8014919-6 (Version None)
Quarter: 2011Q4

REPORT INFORMATION
  Report Type: 
  Country: None (occurrence: None)
  Receive Date: 20111229
  Receipt Date: 20111226
  Transmission Date: 20120403
  Serious: Yes (Other)
  Sender: FDA-Public Use
  Company Number: FR-ROCHE-1013213

PATIENT
  Weight: 62 kg

DRUGS (5)
  1. ONDANSETRON [Concomitant]
  2. METHYLPREDNISOLONE [Concomitant]
  3. AVASTIN [Suspect]
     Indication: COLON CANCER METASTATIC
     Route: 042
     Dates: start: 20110824, end: 20110824
  4. FLUOROURACIL [Concomitant]
  5. PRIMPERAN (FRANCE) [Concomitant]

REACTIONS (1)
  - HYPERTENSIVE ENCEPHALOPATHY [None]
